FAERS Safety Report 6271414-2 (Version None)
Quarter: 2009Q3

REPORT INFORMATION
  Report Type: 
  Country: None (occurrence: None)
  Receive Date: 20090717
  Receipt Date: 20090707
  Transmission Date: 20100115
  Serious: No
  Sender: FDA-Public Use
  Company Number: AR-ROCHE-642276

PATIENT
  Age: 37 Year
  Sex: Female

DRUGS (2)
  1. ROACCUTAN [Suspect]
     Indication: ACNE
     Route: 048
     Dates: start: 20090422, end: 20090703
  2. LEVOTHYROXINE SODIUM [Concomitant]
     Indication: HYPOTHYROIDISM
     Dosage: DRUG NAME REPORTED AS ^LEVOTIROXINE^.
     Route: 048

REACTIONS (2)
  - NO ADVERSE EVENT [None]
  - PREGNANCY [None]
